FAERS Safety Report 16143192 (Version 2)
Quarter: 2020Q4

REPORT INFORMATION
  Report Type: Spontaneous
  Country: PR (occurrence: US)
  Receive Date: 20190401
  Receipt Date: 20201126
  Transmission Date: 20210113
  Serious: Yes (Death, Other)
  Sender: FDA-Public Use
  Company Number: PR-JNJFOC-20190343723

PATIENT
  Age: 77 Year
  Sex: Male

DRUGS (2)
  1. XARELTO [Suspect]
     Active Substance: RIVAROXABAN
     Indication: PULMONARY EMBOLISM
  2. XARELTO [Suspect]
     Active Substance: RIVAROXABAN
     Indication: DEEP VEIN THROMBOSIS
     Route: 048

REACTIONS (6)
  - Shock [Fatal]
  - Pulmonary embolism [Fatal]
  - Respiratory failure [Fatal]
  - Fall [Unknown]
  - Deep vein thrombosis [Fatal]
  - Mediastinal haemorrhage [Unknown]

NARRATIVE: CASE EVENT DATE: 201901
